FAERS Safety Report 4827516-8 (Version None)
Quarter: 2005Q4

REPORT INFORMATION
  Report Type: 
  Country: None (occurrence: None)
  Receive Date: 20051114
  Receipt Date: 20051102
  Transmission Date: 20060501
  Serious: Yes (Other)
  Sender: FDA-Public Use
  Company Number: CA-JNJFOC-20051100826

PATIENT
  Age: 39 Year
  Sex: Male

DRUGS (7)
  1. REMICADE [Suspect]
     Dosage: PATIENT HAS HAD 6 INFUSIONS.
     Route: 042
  2. REMICADE [Suspect]
     Indication: CROHN'S DISEASE
     Route: 042
  3. IMURAN [Concomitant]
  4. LOMOTIL [Concomitant]
  5. LOMOTIL [Concomitant]
  6. PENTASA [Concomitant]
  7. TYLENOL W/ CODEINE NO. 3 [Concomitant]

REACTIONS (1)
  - ADENOCARCINOMA [None]
